FAERS Safety Report 6288066-8 (Version None)
Quarter: 2009Q3

REPORT INFORMATION
  Report Type: 
  Country: None (occurrence: None)
  Receive Date: 20090729
  Receipt Date: 20090715
  Transmission Date: 20100115
  Serious: Yes (Other)
  Sender: FDA-Public Use
  Company Number: PHHY2009MX28414

PATIENT
  Age: 66 Year
  Sex: Female

DRUGS (3)
  1. EXFORGE [Suspect]
     Indication: HYPERTENSION
     Dosage: 1 DF (160/10 MG)/ DAY
     Route: 048
     Dates: start: 20090301
  2. ACETAMINOPHEN [Concomitant]
  3. NAPROXEN [Concomitant]

REACTIONS (2)
  - FALL [None]
  - JOINT SPRAIN [None]
